FAERS Safety Report 7638529-5 (Version None)
Quarter: 2011Q3

REPORT INFORMATION
  Report Type: 
  Country: None (occurrence: None)
  Receive Date: 20110727
  Receipt Date: 20110718
  Transmission Date: 20111222
  Serious: Yes (Other)
  Sender: FDA-Public Use
  Company Number: US-AMGEN-USASP2011001764

PATIENT
  Age: 52 Year
  Sex: Female
  Weight: 78.458 kg

DRUGS (11)
  1. MOBIC [Concomitant]
  2. LORAZEPAM [Concomitant]
  3. LYRICA [Concomitant]
  4. TRANXENE [Concomitant]
  5. ENBREL [Suspect]
     Indication: ANKYLOSING SPONDYLITIS
     Dosage: 50 MG, QWK
     Dates: start: 20100501, end: 20101217
  6. TRAZODONE HCL [Concomitant]
  7. VALTURNA [Concomitant]
  8. HYDROCODONE BITARTRATE [Concomitant]
  9. CYMBALTA [Concomitant]
  10. LIPITOR [Concomitant]
  11. PREMARIN [Concomitant]

REACTIONS (6)
  - ARTHRALGIA [None]
  - BRONCHITIS [None]
  - VARICOSE VEIN [None]
  - PNEUMONIA [None]
  - VENOUS THROMBOSIS LIMB [None]
  - DRUG INEFFECTIVE [None]
